FAERS Safety Report 20495904 (Version 2)
Quarter: 2022Q1

REPORT INFORMATION
  Report Type: Spontaneous
  Country: LV (occurrence: LV)
  Receive Date: 20220221
  Receipt Date: 20220302
  Transmission Date: 20220423
  Serious: Yes (Other)
  Sender: FDA-Public Use
  Company Number: LV-VIIV HEALTHCARE LIMITED-LV2022EME028343

PATIENT
  Sex: Male

DRUGS (4)
  1. TRIUMEQ [Suspect]
     Active Substance: ABACAVIR SULFATE\DOLUTEGRAVIR SODIUM\LAMIVUDINE
     Indication: HIV infection CDC category A
     Dosage: UNK
     Dates: start: 20211004
  2. ATAZANAVIR [Concomitant]
     Active Substance: ATAZANAVIR
     Indication: HIV infection CDC category A
     Dosage: 300 MG, X 1
     Dates: start: 2015, end: 20211004
  3. RITONAVIR [Concomitant]
     Active Substance: RITONAVIR
     Indication: HIV infection CDC category A
     Dosage: 100 MG, X 1
     Dates: start: 2015, end: 20211004
  4. ABACAVIR\LAMIVUDINE [Concomitant]
     Active Substance: ABACAVIR\LAMIVUDINE
     Indication: HIV infection CDC category A
     Dosage: UNK, 600/300MG X 1
     Dates: start: 2015, end: 20211004

REACTIONS (9)
  - Thyroiditis acute [Unknown]
  - Tachycardia [Unknown]
  - Pyrexia [Unknown]
  - Hyperhidrosis [Unknown]
  - Oropharyngeal discomfort [Unknown]
  - Anxiety [Unknown]
  - Hot flush [Unknown]
  - Increased appetite [Unknown]
  - Infertility [Unknown]

NARRATIVE: CASE EVENT DATE: 20211201
